FAERS Safety Report 4587073-0 (Version None)
Quarter: 2005Q1

REPORT INFORMATION
  Report Type: 
  Country: None (occurrence: None)
  Receive Date: 20050214
  Receipt Date: 20050120
  Transmission Date: 20050727
  Serious: Yes (Hospitalization)
  Sender: FDA-Public Use
  Company Number: TNZSE200500010

PATIENT
  Sex: Female

DRUGS (1)
  1. INNOHEP [Suspect]

REACTIONS (1)
  - SUICIDE ATTEMPT [None]
